FAERS Safety Report 9379626 (Version 2)
Quarter: 2013Q3

REPORT INFORMATION
  Report Type: Spontaneous
  Country: FR (occurrence: FR)
  Receive Date: 20130702
  Receipt Date: 20130806
  Transmission Date: 20140515
  Serious: Yes (Hospitalization)
  Sender: FDA-Public Use
  Company Number: FR-ASTRAZENECA-2013SE48772

PATIENT
  Age: 59 Year
  Sex: Male

DRUGS (4)
  1. CRESTOR [Suspect]
     Route: 048
  2. REMICADE [Suspect]
     Dosage: (AROUND 66MG ON THE 400MG PLANNED)
     Route: 065
     Dates: end: 20130606
  3. INSULINE [Suspect]
     Indication: DIABETES MELLITUS
     Route: 065
  4. ZYLORIC [Suspect]
     Route: 048

REACTIONS (8)
  - Body temperature increased [Recovered/Resolved]
  - Pallor [Recovered/Resolved]
  - Chills [Recovered/Resolved]
  - Bacterial infection [Recovered/Resolved]
  - Malaise [Recovered/Resolved]
  - Pain [Recovered/Resolved]
  - Dyspnoea [Recovered/Resolved]
  - Skin discolouration [Recovered/Resolved]
